FAERS Safety Report 4579242-0 (Version None)
Quarter: 2005Q1

REPORT INFORMATION
  Report Type: 
  Country: None (occurrence: None)
  Receive Date: 20050208
  Receipt Date: 20050208
  Transmission Date: 20050727
  Serious: Yes (Hospitalization)
  Sender: FDA-Public Use
  Company Number: None

PATIENT
  Age: 75 Year
  Sex: Male
  Weight: 61 kg

DRUGS (5)
  1. CYTARABINE [Suspect]
     Indication: ACUTE MYELOID LEUKAEMIA
     Dosage: 100 MG/M2 OTHER
     Route: 050
     Dates: start: 20040916
  2. PLACEBO [Suspect]
     Indication: ACUTE MYELOID LEUKAEMIA
     Dosage: 550 MG OTHER
     Route: 050
     Dates: start: 20040916
  3. DAUNORUBICIN [Suspect]
     Indication: ACUTE MYELOID LEUKAEMIA
     Dosage: 45 MG/M2 OTHER
     Route: 050
     Dates: start: 20040916
  4. CIPROFLOXACIN [Concomitant]
  5. DIFLUCAN [Concomitant]

REACTIONS (11)
  - ANOREXIA [None]
  - BACTERIAL SEPSIS [None]
  - CAECITIS [None]
  - CATHETER RELATED INFECTION [None]
  - COLITIS [None]
  - HYPERKALAEMIA [None]
  - LOBAR PNEUMONIA [None]
  - LUNG INFILTRATION [None]
  - NAUSEA [None]
  - PNEUMONITIS [None]
  - RENAL FAILURE ACUTE [None]
